FAERS Safety Report 20865495 (Version 2)
Quarter: 2022Q2

REPORT INFORMATION
  Report Type: Spontaneous
  Country: US (occurrence: US)
  Receive Date: 20220524
  Receipt Date: 20220623
  Transmission Date: 20220720
  Serious: No
  Sender: FDA-Public Use
  Company Number: US-BRISTOL-MYERS SQUIBB COMPANY-2022-032534

PATIENT
  Age: 53 Year
  Sex: Male

DRUGS (2)
  1. REVLIMID [Suspect]
     Active Substance: LENALIDOMIDE
     Indication: Plasma cell myeloma
     Dosage: FREQUENCY ^ TAKE 1 CAPSULE BY MOUTH EVERY DAY FOR DAYS 1-21 FOLLOWED BY 7 DAYS REST^
     Route: 048
     Dates: start: 20220301
  2. REVLIMID [Suspect]
     Active Substance: LENALIDOMIDE
     Dosage: 1- 21 DAYS FOLLOWED BY 7 DAYS REST
     Route: 048
     Dates: start: 20220301

REACTIONS (4)
  - Illness [Recovered/Resolved]
  - Diarrhoea [Recovered/Resolved]
  - Gastric disorder [Recovered/Resolved]
  - Tremor [Not Recovered/Not Resolved]
